FAERS Safety Report 8850992 (Version 1)
Quarter: 2012Q4

REPORT INFORMATION
  Report Type: 
  Country: FR (occurrence: FR)
  Receive Date: 20121019
  Receipt Date: 20121019
  Transmission Date: 20130627
  Serious: Yes (Hospitalization)
  Sender: FDA-Public Use
  Company Number: FR-NOVOPROD-362013

PATIENT
  Age: 60 Year
  Sex: Female

DRUGS (6)
  1. VICTOZA [Suspect]
     Indication: PRODUCT USED FOR UNKNOWN INDICATION
     Route: 065
  2. LEVEMIR [Suspect]
     Indication: PRODUCT USED FOR UNKNOWN INDICATION
     Route: 065
  3. INSULATARD FLEXPEN [Concomitant]
     Dosage: in morning
     Route: 065
  4. NOVOMIX 30 FLEXPEN [Concomitant]
     Dosage: in evening
     Route: 065
  5. NOVORAPID [Concomitant]
     Dosage: at noon
     Route: 065
  6. METFORMINE [Concomitant]

REACTIONS (1)
  - Gamma-glutamyltransferase increased [Unknown]
